FAERS Safety Report 19076469 (Version 1)
Quarter: 2021Q1

REPORT INFORMATION
  Report Type: Spontaneous
  Country: GB (occurrence: GB)
  Receive Date: 20210331
  Receipt Date: 20210331
  Transmission Date: 20210420
  Serious: Yes (Other)
  Sender: FDA-Public Use
  Company Number: GB-SUN PHARMACEUTICAL INDUSTRIES LTD-2021RR-288528

PATIENT
  Sex: Female

DRUGS (12)
  1. CIPROFLOXACIN. [Suspect]
     Active Substance: CIPROFLOXACIN
     Indication: APLASTIC ANAEMIA
     Dosage: UNK
     Route: 065
  2. CUBICIN [Suspect]
     Active Substance: DAPTOMYCIN
     Indication: ENDOCARDITIS BACTERIAL
  3. DAPTOMYCIN. [Suspect]
     Active Substance: DAPTOMYCIN
     Indication: ENDOCARDITIS BACTERIAL
     Dosage: UNK
     Route: 065
  4. CIPROFLOXACIN. [Suspect]
     Active Substance: CIPROFLOXACIN
     Indication: ENDOCARDITIS BACTERIAL
  5. FLUCONAZOLE. [Interacting]
     Active Substance: FLUCONAZOLE
     Indication: ENDOCARDITIS BACTERIAL
     Dosage: UNK
     Route: 065
  6. CUBICIN [Suspect]
     Active Substance: DAPTOMYCIN
     Indication: APLASTIC ANAEMIA
     Dosage: UNK
     Route: 065
  7. RIFAMPIN. [Suspect]
     Active Substance: RIFAMPIN
     Indication: APLASTIC ANAEMIA
     Dosage: UNK
     Route: 065
  8. RIFAMPIN. [Suspect]
     Active Substance: RIFAMPIN
     Indication: ENDOCARDITIS BACTERIAL
  9. CYCLOSPORINE. [Suspect]
     Active Substance: CYCLOSPORINE
     Indication: APLASTIC ANAEMIA
     Dosage: UNK
     Route: 065
  10. CYCLOSPORINE. [Suspect]
     Active Substance: CYCLOSPORINE
     Indication: ENDOCARDITIS BACTERIAL
  11. FLUCONAZOLE. [Interacting]
     Active Substance: FLUCONAZOLE
     Indication: APLASTIC ANAEMIA
  12. DAPTOMYCIN. [Suspect]
     Active Substance: DAPTOMYCIN
     Indication: APLASTIC ANAEMIA

REACTIONS (1)
  - Drug interaction [Unknown]
